FAERS Safety Report 7657400-6 (Version None)
Quarter: 2011Q3

REPORT INFORMATION
  Report Type: 
  Country: None (occurrence: None)
  Receive Date: 20110804
  Receipt Date: 20101116
  Transmission Date: 20111222
  Serious: Yes (Other)
  Sender: FDA-Public Use
  Company Number: PE-ASTRAZENECA-2011SE45197

PATIENT
  Age: 37 Year
  Sex: Female

DRUGS (2)
  1. OMNIPLUS [Concomitant]
  2. NEXIUM [Suspect]
     Indication: PROPHYLAXIS AGAINST GASTROINTESTINAL ULCER
     Route: 048
     Dates: start: 20100826, end: 20101109

REACTIONS (4)
  - GASTROOESOPHAGEAL REFLUX DISEASE [None]
  - ABDOMINAL DISCOMFORT [None]
  - GASTROINTESTINAL HAEMORRHAGE [None]
  - DYSPEPSIA [None]
